FAERS Safety Report 9437556 (Version 1)
Quarter: 2013Q3

REPORT INFORMATION
  Report Type: Spontaneous
  Country: JP (occurrence: JP)
  Receive Date: 20130802
  Receipt Date: 20130802
  Transmission Date: 20140515
  Serious: Yes (Other)
  Sender: FDA-Public Use
  Company Number: JP-ASTRAZENECA-2013SE58326

PATIENT
  Age: 80 Year
  Sex: Female

DRUGS (1)
  1. CRESTOR [Suspect]
     Indication: DYSLIPIDAEMIA
     Route: 048
     Dates: start: 201301, end: 20130723

REACTIONS (3)
  - Dermatitis exfoliative [Recovering/Resolving]
  - Localised oedema [Recovering/Resolving]
  - Purpura [Unknown]
